FAERS Safety Report 4837139-2 (Version None)
Quarter: 2005Q4

REPORT INFORMATION
  Report Type: 
  Country: None (occurrence: None)
  Receive Date: 20051122
  Receipt Date: 20051109
  Transmission Date: 20060501
  Serious: Yes (Hospitalization, Other)
  Sender: FDA-Public Use
  Company Number: DSA_70854_2005

PATIENT
  Age: 41 Year
  Sex: Female

DRUGS (8)
  1. ROXICODONE [Suspect]
     Indication: ARTHRALGIA
     Dosage: DF UNK
     Route: 065
     Dates: end: 20051027
  2. PEG-INTRON [Suspect]
     Indication: HEPATITIS C
     Dosage: DF UNK
     Route: 065
     Dates: start: 20041019, end: 20050919
  3. REBETOL [Suspect]
     Indication: HEPATITIS C
     Dosage: DF UNK PO
     Route: 048
     Dates: start: 20041019, end: 20050919
  4. DARVOCET-N 100 [Concomitant]
  5. EFFEXOR [Concomitant]
  6. NAPROSYN [Concomitant]
  7. TOPAMAX [Concomitant]
  8. TYLOX [Concomitant]

REACTIONS (3)
  - APPENDICITIS PERFORATED [None]
  - CHILLS [None]
  - DRUG WITHDRAWAL SYNDROME [None]
